FAERS Safety Report 25548536 (Version 1)
Quarter: 2025Q3

REPORT INFORMATION
  Report Type: Spontaneous
  Country: US (occurrence: None)
  Receive Date: 20250712
  Receipt Date: 20250712
  Transmission Date: 20251021
  Serious: Yes (Other)
  Sender: FDA-CTU
  Company Number: None

PATIENT
  Age: 39 Year
  Sex: Female
  Weight: 67.5 kg

DRUGS (1)
  1. ESCITALOPRAM [Suspect]
     Active Substance: ESCITALOPRAM OXALATE
     Indication: Anxiety
     Route: 048
     Dates: start: 20150501, end: 20250210

REACTIONS (4)
  - Drug withdrawal syndrome [None]
  - Adverse drug reaction [None]
  - Mental disorder [None]
  - Ill-defined disorder [None]

NARRATIVE: CASE EVENT DATE: 20250517
